FAERS Safety Report 6885309-4 (Version None)
Quarter: 2010Q3

REPORT INFORMATION
  Report Type: 
  Country: None (occurrence: None)
  Receive Date: 20100729
  Receipt Date: 20100729
  Transmission Date: 20110219
  Serious: Yes (Life-Threatening, Hospitalization)
  Sender: FDA-Public Use
  Company Number: None

PATIENT
  Sex: Male
  Weight: 117.9352 kg

DRUGS (2)
  1. CRESTOR [Suspect]
     Indication: BLOOD CHOLESTEROL
     Dosage: ONE DAILY MOUTH 6-8 WEEKS
     Route: 048
  2. REQUIP [Suspect]
     Indication: RESTLESS LEGS SYNDROME
     Dosage: ONE DAILY MOUTH FEW DAYS
     Route: 048

REACTIONS (3)
  - PERSONALITY DISORDER [None]
  - RESTLESS LEGS SYNDROME [None]
  - SCHIZOPHRENIFORM DISORDER [None]
